FAERS Safety Report 5731800-3 (Version None)
Quarter: 2008Q2

REPORT INFORMATION
  Report Type: 
  Country: None (occurrence: None)
  Receive Date: 20080506
  Receipt Date: 20080506
  Transmission Date: 20081010
  Serious: Yes (Hospitalization)
  Sender: FDA-Public Use
  Company Number: None

PATIENT
  Age: 55 Year
  Sex: Male
  Weight: 87.82 kg

DRUGS (1)
  1. PERPHENAZINE [Suspect]
     Indication: SCHIZOPHRENIA, PARANOID TYPE
     Dosage: 4 MG PRN PO
     Route: 048
     Dates: start: 20080502, end: 20080505

REACTIONS (2)
  - CRYING [None]
  - MUSCULOSKELETAL DISCOMFORT [None]
